FAERS Safety Report 22352593 (Version 2)
Quarter: 2023Q2

REPORT INFORMATION
  Report Type: Spontaneous
  Country: CN (occurrence: CN)
  Receive Date: 20230523
  Receipt Date: 20230619
  Transmission Date: 20230722
  Serious: Yes (Hospitalization, Other)
  Sender: FDA-Public Use
  Company Number: CN-STRIDES ARCOLAB LIMITED-2023SP007305

PATIENT
  Age: 51 Year
  Sex: Male

DRUGS (5)
  1. OXYCODONE [Interacting]
     Active Substance: OXYCODONE
     Indication: Analgesic therapy
     Dosage: 10 MILLIGRAM, QD; FOR 2 DAYS
     Route: 048
     Dates: start: 201906
  2. OXYCODONE AND ACETAMINOPHEN [Interacting]
     Active Substance: ACETAMINOPHEN\OXYCODONE HYDROCHLORIDE
     Indication: Analgesic therapy
     Dosage: 1 TABLETS, TID; OXYCODONE 5MG AND PARACETAMOL (ACETAMINOPHEN) 325MG; THRICE DAILY BEFORE AND AFTER T
     Route: 048
     Dates: start: 201906
  3. OXYCODONE AND ACETAMINOPHEN [Interacting]
     Active Substance: ACETAMINOPHEN\OXYCODONE HYDROCHLORIDE
     Dosage: 1 DOSAGE FORM, 1 TABLET; TID; THRICE DAILY AFTER DISCHARGE
     Route: 048
     Dates: start: 201906
  4. PREGABALIN [Interacting]
     Active Substance: PREGABALIN
     Indication: Analgesic therapy
     Dosage: 75 MILLIGRAM, BID
     Route: 048
     Dates: start: 201906
  5. AMINO ACIDS, SOURCE UNSPECIFIED [Concomitant]
     Active Substance: AMINO ACIDS, SOURCE UNSPECIFIED
     Indication: Product used for unknown indication
     Dosage: 250 MILLILITER; PER DAY
     Route: 041
     Dates: start: 201906

REACTIONS (7)
  - Mental disorder [Recovered/Resolved]
  - Delirium [Recovered/Resolved]
  - Irritability [Recovered/Resolved]
  - Cognitive disorder [Recovered/Resolved]
  - Disorientation [Recovered/Resolved]
  - Drug interaction [Unknown]
  - Seizure [Recovered/Resolved]

NARRATIVE: CASE EVENT DATE: 20190601
